FAERS Safety Report 15066411 (Version 1)
Quarter: 2018Q2

REPORT INFORMATION
  Report Type: Spontaneous
  Country: US (occurrence: US)
  Receive Date: 20180606
  Receipt Date: 20180606
  Transmission Date: 20180711
  Serious: Yes (Hospitalization)
  Sender: FDA-Public Use
  Company Number: None

PATIENT
  Age: 61 Year
  Sex: Male

DRUGS (13)
  1. FINASTERIDE. [Concomitant]
     Active Substance: FINASTERIDE
  2. CYCLOBENZAPR [Concomitant]
     Active Substance: CYCLOBENZAPRINE
  3. LATANOPROST. [Concomitant]
     Active Substance: LATANOPROST
  4. VITAMIN D3 [Concomitant]
     Active Substance: CHOLECALCIFEROL
  5. PROSCAR [Concomitant]
     Active Substance: FINASTERIDE
  6. INVOKANA [Concomitant]
     Active Substance: CANAGLIFLOZIN
  7. FLOMAX [Concomitant]
     Active Substance: TAMSULOSIN HYDROCHLORIDE
  8. HUMIRA [Suspect]
     Active Substance: ADALIMUMAB
     Indication: PSORIASIS
     Dosage: ?          OTHER FREQUENCY:WEEKLY;?
     Route: 058
     Dates: start: 20060711
  9. PROTONIX [Concomitant]
     Active Substance: PANTOPRAZOLE SODIUM
  10. AMBIEN [Concomitant]
     Active Substance: ZOLPIDEM TARTRATE
  11. SIMVASTATIN. [Concomitant]
     Active Substance: SIMVASTATIN
  12. VITAMIN B12 [Concomitant]
     Active Substance: CYANOCOBALAMIN
  13. SYNTHROID [Concomitant]
     Active Substance: LEVOTHYROXINE SODIUM

REACTIONS (1)
  - Sepsis [None]

NARRATIVE: CASE EVENT DATE: 20180513
